FAERS Safety Report 10411703 (Version 2)
Quarter: 2014Q4

REPORT INFORMATION
  Report Type: Report from Study
  Country: PL (occurrence: PL)
  Receive Date: 20140827
  Receipt Date: 20141022
  Transmission Date: 20150528
  Serious: Yes (Hospitalization)
  Sender: FDA-Public Use
  Company Number: PL-SHIRE-PL201405227

PATIENT
  Age: 12 Year
  Sex: Male

DRUGS (3)
  1. IDURSULFASE [Suspect]
     Active Substance: IDURSULFASE
     Indication: MUCOPOLYSACCHARIDOSIS II
     Dosage: UNK, 1X/WEEK
     Route: 041
     Dates: start: 20091027, end: 20121018
  2. DEPAKINE                           /00228502/ [Suspect]
     Active Substance: VALPROATE SODIUM
     Indication: SEIZURE
     Dosage: UNK, UNKNOWN
     Route: 065
     Dates: start: 201004, end: 201008
  3. NEUROTOP [Concomitant]
     Indication: SEIZURE
     Dosage: UNK, UNKNOWN
     Route: 065
     Dates: start: 2008

REACTIONS (2)
  - Neurological decompensation [Recovered/Resolved]
  - Balance disorder [Recovered/Resolved]

NARRATIVE: CASE EVENT DATE: 201004
